FAERS Safety Report 20382459 (Version 3)
Quarter: 2022Q2

REPORT INFORMATION
  Report Type: Spontaneous
  Country: GR (occurrence: GR)
  Receive Date: 20220127
  Receipt Date: 20220418
  Transmission Date: 20220721
  Serious: No
  Sender: FDA-Public Use
  Company Number: GR-PFIZER INC-202101881721

PATIENT
  Age: 15 Year
  Sex: Male
  Weight: 54 kg

DRUGS (1)
  1. GENOTROPIN [Suspect]
     Active Substance: SOMATROPIN
     Indication: Growth hormone deficiency
     Dosage: 10MG/7DAYS/12.0 MG PEN
     Route: 058
     Dates: start: 201809

REACTIONS (2)
  - Drug dose omission by device [Unknown]
  - Device loosening [Unknown]

NARRATIVE: CASE EVENT DATE: 20211229
